FAERS Safety Report 17284905 (Version 5)
Quarter: 2020Q3

REPORT INFORMATION
  Report Type: Report from Study
  Country: US (occurrence: US)
  Receive Date: 20200117
  Receipt Date: 20200910
  Transmission Date: 20201102
  Serious: No
  Sender: FDA-Public Use
  Company Number: NVSC2020US010039

PATIENT
  Age: 54 Year
  Sex: Male

DRUGS (4)
  1. ENTRESTO [Suspect]
     Active Substance: SACUBITRIL\VALSARTAN
     Dosage: UNK, BID
     Route: 048
  2. ENTRESTO [Suspect]
     Active Substance: SACUBITRIL\VALSARTAN
     Indication: CARDIAC FAILURE
     Dosage: 0.5 DF
     Route: 065
  3. ENTRESTO [Suspect]
     Active Substance: SACUBITRIL\VALSARTAN
     Indication: CARDIAC FAILURE CHRONIC
     Dosage: UNK QD
     Route: 048
  4. ENTRESTO [Suspect]
     Active Substance: SACUBITRIL\VALSARTAN
     Route: 048

REACTIONS (10)
  - Inappropriate schedule of product administration [Unknown]
  - Hypersensitivity [Unknown]
  - Paranasal sinus hypersecretion [Unknown]
  - Weight increased [Unknown]
  - Palpitations [Unknown]
  - Blood pressure abnormal [Unknown]
  - Cough [Unknown]
  - Product dose omission issue [Unknown]
  - Dyspnoea [Unknown]
  - Fluid retention [Unknown]
